FAERS Safety Report 19458531 (Version 1)
Quarter: 2021Q2

REPORT INFORMATION
  Report Type: Spontaneous
  Country: IN (occurrence: IN)
  Receive Date: 20210624
  Receipt Date: 20210624
  Transmission Date: 20210717
  Serious: Yes (Hospitalization)
  Sender: FDA-Public Use
  Company Number: IN-MYLANLABS-2021M1036893

PATIENT
  Age: 41 Year
  Sex: Female

DRUGS (13)
  1. VANCOMYCIN [Suspect]
     Active Substance: VANCOMYCIN
     Dosage: UNK
  2. HOMATROPINE [Concomitant]
     Active Substance: HOMATROPINE HYDROBROMIDE
     Indication: ANTIBIOTIC PROPHYLAXIS
     Dosage: UNK
     Route: 061
  3. VANCOMYCIN [Concomitant]
     Active Substance: VANCOMYCIN
     Indication: ANTIBIOTIC PROPHYLAXIS
     Dosage: 500 MILLIGRAM, QID 4 TIMES A DAY
     Route: 042
  4. TOBRAMYCIN. [Suspect]
     Active Substance: TOBRAMYCIN
     Indication: ANTIBIOTIC PROPHYLAXIS
     Dosage: UNK, QID, 4 TIMES A DAY
     Route: 061
  5. PANTOPRAZOLE [Concomitant]
     Active Substance: PANTOPRAZOLE
     Indication: ANTIBIOTIC PROPHYLAXIS
     Dosage: 40 MILLIGRAM
     Route: 048
  6. ACETAZOLAMIDE. [Concomitant]
     Active Substance: ACETAZOLAMIDE
     Indication: ANTIBIOTIC PROPHYLAXIS
     Dosage: 250 MILLIGRAM, TID
     Route: 065
  7. ATROPINE SULFATE. [Suspect]
     Active Substance: ATROPINE SULFATE
     Indication: ANTIBIOTIC PROPHYLAXIS
     Dosage: UNK, TID, 3 TIMES A DAY
     Route: 061
  8. PREDNISOLONE ACETATE. [Suspect]
     Active Substance: PREDNISOLONE ACETATE
     Indication: ANTIBIOTIC PROPHYLAXIS
     Dosage: 6 TIMES A DAY
     Route: 061
  9. CEFTAZIDIME. [Concomitant]
     Active Substance: CEFTAZIDIME
     Indication: ANTIBIOTIC PROPHYLAXIS
     Dosage: 1 GRAM
     Route: 042
  10. MOXIFLOXACIN. [Suspect]
     Active Substance: MOXIFLOXACIN
     Indication: ANTIBIOTIC PROPHYLAXIS
     Dosage: UNK
     Route: 031
  11. VANCOMYCIN [Suspect]
     Active Substance: VANCOMYCIN
     Indication: ANTIBIOTIC PROPHYLAXIS
     Dosage: UNK
     Route: 061
  12. PREDNISOLONE. [Suspect]
     Active Substance: PREDNISOLONE
     Indication: ANTIBIOTIC PROPHYLAXIS
     Dosage: 50 MILLIGRAM, QD
     Route: 048
  13. CEFTAZIDIME. [Suspect]
     Active Substance: CEFTAZIDIME
     Indication: ANTIBIOTIC PROPHYLAXIS
     Dosage: UNK
     Route: 061

REACTIONS (5)
  - Drug ineffective [Unknown]
  - Corneal disorder [Unknown]
  - Staphylococcal infection [Recovered/Resolved]
  - Corneal abscess [Recovered/Resolved]
  - Toxicity to various agents [Unknown]
